FAERS Safety Report 8808210 (Version 2)
Quarter: 2012Q4

REPORT INFORMATION
  Report Type: 
  Country: US (occurrence: US)
  Receive Date: 20120926
  Receipt Date: 20121221
  Transmission Date: 20130627
  Serious: Yes (Hospitalization)
  Sender: FDA-Public Use
  Company Number: US-BIOGENIDEC-2012BI039972

PATIENT
  Age: 65 Year
  Sex: Male

DRUGS (11)
  1. TYSABRI [Suspect]
     Indication: MULTIPLE SCLEROSIS
     Route: 042
     Dates: start: 20090414
  2. BUPROPION [Concomitant]
     Indication: DEPRESSION
  3. DOXAZOSIN [Concomitant]
     Indication: HYPERTENSION
  4. PROSCAR [Concomitant]
     Indication: BENIGN PROSTATIC HYPERPLASIA
  5. GLIMEPERIDE [Concomitant]
     Indication: TYPE 2 DIABETES MELLITUS
  6. METFORMIN [Concomitant]
     Indication: TYPE 2 DIABETES MELLITUS
  7. PROVIGIL [Concomitant]
     Indication: FATIGUE
  8. SINGULAIR [Concomitant]
     Indication: ASTHMA
  9. ACTOS [Concomitant]
     Indication: TYPE 2 DIABETES MELLITUS
  10. CRESTOR [Concomitant]
     Indication: LIPIDS
  11. JANUVIA [Concomitant]
     Indication: TYPE 2 DIABETES MELLITUS

REACTIONS (2)
  - Renal failure acute [Recovered/Resolved]
  - Urosepsis [Recovered/Resolved]
